FAERS Safety Report 7679317-3 (Version None)
Quarter: 2011Q3

REPORT INFORMATION
  Report Type: 
  Country: None (occurrence: None)
  Receive Date: 20110812
  Receipt Date: 20110805
  Transmission Date: 20111222
  Serious: Yes (Disabling, Other)
  Sender: FDA-Public Use
  Company Number: IE-AMGEN-IRLSP2011018771

PATIENT
  Age: 47 Year
  Sex: Female
  Weight: 98.4 kg

DRUGS (6)
  1. ENBREL [Suspect]
     Dosage: 50 MG, WEEKLY
     Dates: start: 20110401, end: 20110601
  2. DELTACORTRIL [Concomitant]
  3. ENBREL [Suspect]
     Indication: RHEUMATOID ARTHRITIS
     Dosage: 50 MG, WEEKLY
     Route: 058
     Dates: start: 20101130, end: 20110401
  4. NITROFURANTOIN [Concomitant]
     Indication: NEPHRECTOMY
  5. PLAQUENIL [Concomitant]
     Dosage: 200 MG, DAILY
     Route: 048
  6. NEXIUM [Concomitant]

REACTIONS (3)
  - LOWER RESPIRATORY TRACT INFECTION [None]
  - HYPOAESTHESIA [None]
  - PARAESTHESIA [None]
